FAERS Safety Report 8926883 (Version 1)
Quarter: 2012Q4

REPORT INFORMATION
  Report Type: 
  Country: US (occurrence: US)
  Receive Date: 20121127
  Receipt Date: 20121127
  Transmission Date: 20130627
  Serious: Yes (Other)
  Sender: FDA-Public Use
  Company Number: US-ELI_LILLY_AND_COMPANY-US201211005341

PATIENT
  Age: 59 Year
  Sex: Female

DRUGS (4)
  1. CYMBALTA [Suspect]
     Indication: DEPRESSION
     Dosage: 90 mg, qd
     Dates: start: 20120601, end: 20120630
  2. SEROQUEL [Concomitant]
  3. TRAZODONE [Concomitant]
  4. KLONOPIN [Concomitant]

REACTIONS (2)
  - Hepatic enzyme increased [Recovering/Resolving]
  - Cellulitis [Unknown]
